FAERS Safety Report 26213820 (Version 1)
Quarter: 2025Q4

REPORT INFORMATION
  Report Type: Spontaneous
  Country: SA (occurrence: SA)
  Receive Date: 20251230
  Receipt Date: 20251230
  Transmission Date: 20260117
  Serious: Yes (Other)
  Sender: GLAND PHARMA LTD
  Company Number: SA-GLANDPHARMA-SA-2025GLNLIT02174

PATIENT
  Age: 57 Year
  Sex: Male

DRUGS (3)
  1. DEXMEDETOMIDINE HYDROCHLORIDE [Suspect]
     Active Substance: DEXMEDETOMIDINE HYDROCHLORIDE
     Indication: Spinal anaesthesia
     Route: 065
  2. VANCOMYCIN [Concomitant]
     Active Substance: VANCOMYCIN
     Route: 065
  3. GENTAMICIN [Concomitant]
     Active Substance: GENTAMICIN
     Route: 065

REACTIONS (1)
  - Syncope [Recovered/Resolved]
